FAERS Safety Report 8274266-4 (Version None)
Quarter: 2012Q2

REPORT INFORMATION
  Report Type: 
  Country: None (occurrence: None)
  Receive Date: 20120411
  Receipt Date: 20120411
  Transmission Date: 20120825
  Serious: Yes (Other)
  Sender: FDA-Public Use
  Company Number: None

PATIENT
  Sex: Female
  Weight: 82.05 kg

DRUGS (2)
  1. GAMUNEX [Concomitant]
     Dosage: 50GM
     Route: 041
     Dates: start: 20120314, end: 20120314
  2. IMMUNE GLOBULIN (HUMAN) [Suspect]
     Indication: CHRONIC INFLAMMATORY DEMYELINATING POLYRADICULONEUROPATHY
     Dosage: 50GM
     Route: 041
     Dates: start: 20120222, end: 20120222

REACTIONS (1)
  - RASH ERYTHEMATOUS [None]
